FAERS Safety Report 9921932 (Version 1)
Quarter: 2014Q1

REPORT INFORMATION
  Report Type: Spontaneous
  Country: US (occurrence: None)
  Receive Date: 20140221
  Receipt Date: 20140221
  Transmission Date: 20141002
  Serious: No
  Sender: FDA-Public Use
  Company Number: None

PATIENT
  Age: 40 Year
  Sex: Female
  Weight: 60.33 kg

DRUGS (1)
  1. VENLAFAXINE [Suspect]
     Indication: DEPRESSION
     Route: 048

REACTIONS (6)
  - Product substitution issue [None]
  - Drug ineffective [None]
  - Headache [None]
  - Dizziness [None]
  - Depression [None]
  - Product quality issue [None]
